FAERS Safety Report 9445022 (Version 2)
Quarter: 2013Q3

REPORT INFORMATION
  Report Type: Spontaneous
  Country: FR (occurrence: None)
  Receive Date: 20130729
  Receipt Date: 20130809
  Transmission Date: 20140515
  Serious: Yes (Other)
  Sender: FDA-Public Use
  Company Number: 2013037050

PATIENT
  Age: 3 Year
  Sex: Male

DRUGS (1)
  1. IVIG [Suspect]
     Indication: KAWASAKI^S DISEASE
     Dosage: FIRST DOSE, IN TWO

REACTIONS (1)
  - Drug ineffective for unapproved indication [None]
